FAERS Safety Report 8899558 (Version 1)
Quarter: 2012Q4

REPORT INFORMATION
  Report Type: 
  Country: JP (occurrence: JP)
  Receive Date: 20121109
  Receipt Date: 20121109
  Transmission Date: 20130627
  Serious: Yes (Hospitalization)
  Sender: FDA-Public Use
  Company Number: JP-PFIZER INC-2012276388

PATIENT
  Sex: Female

DRUGS (2)
  1. AROMASIN [Suspect]
     Route: 048
  2. WARFARIN [Suspect]
     Route: 048

REACTIONS (2)
  - Dehydration [Unknown]
  - International normalized ratio fluctuation (changes wildly) [Unknown]
